FAERS Safety Report 7534459-8 (Version None)
Quarter: 2011Q2

REPORT INFORMATION
  Report Type: 
  Country: None (occurrence: None)
  Receive Date: 20110608
  Receipt Date: 20110531
  Transmission Date: 20111010
  Serious: Yes (Hospitalization)
  Sender: FDA-Public Use
  Company Number: US-GENENTECH-319712

PATIENT
  Age: 49 Year
  Sex: Female
  Weight: 91.4 kg

DRUGS (17)
  1. DEXAMETHASONE ACETATE [Suspect]
     Indication: LYMPHOMA
  2. ESTROGENS CONJUGATED [Concomitant]
     Indication: HORMONE REPLACEMENT THERAPY
     Dosage: UNK
     Dates: start: 19960101, end: 20110425
  3. OMEPRAZOLE [Concomitant]
     Indication: GASTROOESOPHAGEAL REFLUX DISEASE
     Dosage: UNK
     Dates: start: 20100318
  4. INOTUZUMAB OZOGAMICIN [Suspect]
     Indication: NON-HODGKIN'S LYMPHOMA
     Dosage: 1.6 MG, Q21D
     Route: 042
     Dates: start: 20110224
  5. INOTUZUMAB OZOGAMICIN [Suspect]
     Indication: LYMPHOMA
  6. GEMCITABINE [Suspect]
     Indication: NON-HODGKIN'S LYMPHOMA
     Dosage: 1000 MG, Q21D
     Route: 042
     Dates: start: 20110224
  7. ONDANSETRON [Concomitant]
     Indication: NAUSEA
     Dosage: UNK
     Dates: start: 20110325
  8. BACTRIM DS [Concomitant]
     Indication: URINARY TRACT INFECTION
     Dosage: UNK
     Dates: start: 20110406, end: 20110415
  9. DEXAMETHASONE ACETATE [Suspect]
     Indication: NON-HODGKIN'S LYMPHOMA
     Dosage: 40 MG, UNK
     Route: 048
     Dates: start: 20110224
  10. ZYRTEC [Concomitant]
     Indication: HYPERSENSITIVITY
     Dosage: UNK
     Dates: start: 20081112
  11. RITUXAN [Suspect]
     Indication: LYMPHOMA
  12. CISPLATIN [Suspect]
     Indication: NON-HODGKIN'S LYMPHOMA
     Dosage: 75 MG, Q21D
     Route: 042
     Dates: start: 20110224
  13. GEMCITABINE [Suspect]
     Indication: LYMPHOMA
  14. NEULASTA [Concomitant]
     Indication: NEUTROPENIA
     Dosage: UNK
     Dates: start: 20110321
  15. RITUXAN [Suspect]
     Indication: NON-HODGKIN'S LYMPHOMA
     Dosage: 750 MG, Q21D
     Route: 042
     Dates: start: 20110224
  16. ALBUTEROL SULFATE AUTOHALER [Concomitant]
     Indication: CHRONIC OBSTRUCTIVE PULMONARY DISEASE
     Dosage: UNK
     Dates: start: 20100426
  17. CISPLATIN [Suspect]
     Indication: LYMPHOMA

REACTIONS (1)
  - THROMBOPHLEBITIS [None]
